FAERS Safety Report 13705661 (Version 2)
Quarter: 2017Q3

REPORT INFORMATION
  Report Type: Spontaneous
  Country: AU (occurrence: AU)
  Receive Date: 20170630
  Receipt Date: 20170711
  Transmission Date: 20171127
  Serious: Yes (Other)
  Sender: FDA-Public Use
  Company Number: AU-ACTELION-A-CH2017-155727

PATIENT
  Age: 16 Year
  Sex: Male
  Weight: 56 kg

DRUGS (4)
  1. OPSUMIT [Suspect]
     Active Substance: MACITENTAN
     Indication: PULMONARY ARTERIAL HYPERTENSION
     Dosage: 10 MG, OD
     Route: 048
     Dates: start: 20161220
  2. VELETRI [Suspect]
     Active Substance: EPOPROSTENOL
     Indication: PULMONARY ARTERIAL HYPERTENSION
     Dosage: 37.5 NG/KG, PER MIN
     Route: 042
     Dates: start: 20151130
  3. SANDOMIGRAN [Concomitant]
     Active Substance: PIZOTYLINE
     Indication: MIGRAINE
     Dosage: UNK, QD
     Route: 048
     Dates: start: 201212
  4. SILDENAFIL. [Concomitant]
     Active Substance: SILDENAFIL
     Indication: PULMONARY ARTERIAL HYPERTENSION
     Dosage: 40 MG, TID
     Route: 048
     Dates: start: 200412

REACTIONS (4)
  - Blindness transient [Not Recovered/Not Resolved]
  - Visual impairment [Not Recovered/Not Resolved]
  - Visual field defect [Recovered/Resolved]
  - Concomitant disease aggravated [Not Recovered/Not Resolved]
